FAERS Safety Report 25427283 (Version 1)
Quarter: 2025Q2

REPORT INFORMATION
  Report Type: Spontaneous
  Country: JP (occurrence: JP)
  Receive Date: 20250612
  Receipt Date: 20250612
  Transmission Date: 20250717
  Serious: Yes (Hospitalization, Other)
  Sender: TAKEDA
  Company Number: JP-TAKEDA-2025TUS053984

PATIENT
  Age: 58 Year
  Sex: Male

DRUGS (12)
  1. LIALDA [Suspect]
     Active Substance: MESALAMINE
     Indication: Colitis
  2. PREDNISOLONE [Concomitant]
     Active Substance: PREDNISOLONE
     Indication: Colitis
     Dosage: 1 MILLIGRAM/KILOGRAM, QD
  3. PREDNISOLONE [Concomitant]
     Active Substance: PREDNISOLONE
     Dosage: 5 MILLIGRAM, QD
  4. PREDNISOLONE [Concomitant]
     Active Substance: PREDNISOLONE
     Dosage: 0.5 MILLIGRAM/KILOGRAM, QD
  5. ATEZOLIZUMAB [Concomitant]
     Active Substance: ATEZOLIZUMAB
  6. INFLIXIMAB [Concomitant]
     Active Substance: INFLIXIMAB
     Dosage: 5 MILLIGRAM/KILOGRAM, QD
  7. TACROLIMUS [Concomitant]
     Active Substance: TACROLIMUS
     Indication: Colitis
     Dosage: 1 MILLIGRAM, QD
  8. TACROLIMUS [Concomitant]
     Active Substance: TACROLIMUS
  9. RAMUCIRUMAB [Concomitant]
     Active Substance: RAMUCIRUMAB
  10. DOCETAXEL [Concomitant]
     Active Substance: DOCETAXEL
  11. NIVOLUMAB [Concomitant]
     Active Substance: NIVOLUMAB
  12. IPILIMUMAB [Concomitant]
     Active Substance: IPILIMUMAB

REACTIONS (3)
  - Colitis [Recovering/Resolving]
  - Lung neoplasm malignant [Unknown]
  - Off label use [Unknown]
